FAERS Safety Report 5925001-3 (Version None)
Quarter: 2008Q3

REPORT INFORMATION
  Report Type: 
  Country: None (occurrence: None)
  Receive Date: 20080909
  Receipt Date: 20080513
  Transmission Date: 20090109
  Serious: Yes (Death)
  Sender: FDA-Public Use
  Company Number: 163-20785-08040652

PATIENT
  Age: 62 Year
  Sex: Male

DRUGS (9)
  1. THALOMID [Suspect]
     Indication: MULTIPLE MYELOMA
     Dosage: 200 MG, AT HOUR OF SLEEP, ORAL ; 200 MG, AT HOUR OF SLEEP, ORAL
     Route: 048
     Dates: start: 20080220, end: 20080311
  2. THALOMID [Suspect]
     Indication: MULTIPLE MYELOMA
     Dosage: 200 MG, AT HOUR OF SLEEP, ORAL ; 200 MG, AT HOUR OF SLEEP, ORAL
     Route: 048
     Dates: start: 20080319, end: 20080406
  3. PRILOSEC [Concomitant]
  4. MEGACE [Concomitant]
  5. QUAL (QUAL) [Concomitant]
  6. SPIRIVA [Concomitant]
  7. FENTANYL (FENTANYL) (POULTICE OR PATCH) [Concomitant]
  8. ASPIRIN [Concomitant]
  9. PREDNISONE [Concomitant]

REACTIONS (1)
  - CARDIAC FAILURE CONGESTIVE [None]
